FAERS Safety Report 11379701 (Version 6)
Quarter: 2018Q4

REPORT INFORMATION
  Report Type: Report from Study
  Country: CA (occurrence: CA)
  Receive Date: 20150814
  Receipt Date: 20181030
  Transmission Date: 20190204
  Serious: Yes (Other)
  Sender: FDA-Public Use
  Company Number: CA-ROCHE-1615439

PATIENT
  Age: 70 Year
  Sex: Female

DRUGS (18)
  1. ESBRIET [Suspect]
     Active Substance: PIRFENIDONE
     Route: 048
     Dates: start: 20150723
  2. ESBRIET [Suspect]
     Active Substance: PIRFENIDONE
     Route: 048
     Dates: start: 20150810
  3. CANDESARTAN. [Concomitant]
     Active Substance: CANDESARTAN
  4. JANUVIA [Concomitant]
     Active Substance: SITAGLIPTIN PHOSPHATE
     Route: 065
  5. ESBRIET [Suspect]
     Active Substance: PIRFENIDONE
     Dosage: 801MG-534MG-534MG
     Route: 048
     Dates: start: 20150824
  6. PANTOPRAZOLE [Concomitant]
     Active Substance: PANTOPRAZOLE
  7. PLAVIX [Concomitant]
     Active Substance: CLOPIDOGREL BISULFATE
  8. TRAVATAN [Concomitant]
     Active Substance: TRAVOPROST
     Route: 065
  9. ESBRIET [Suspect]
     Active Substance: PIRFENIDONE
     Indication: IDIOPATHIC PULMONARY FIBROSIS
     Route: 048
     Dates: start: 20150716
  10. ESBRIET [Suspect]
     Active Substance: PIRFENIDONE
     Route: 048
     Dates: start: 20150729
  11. ESBRIET [Suspect]
     Active Substance: PIRFENIDONE
     Route: 048
     Dates: start: 2016
  12. ACETYLSALICYLIC ACID [Concomitant]
     Active Substance: ASPIRIN
     Route: 065
  13. ESBRIET [Suspect]
     Active Substance: PIRFENIDONE
     Dosage: 534MG-801MG-801MG
     Route: 048
     Dates: start: 20150901
  14. CRESTOR [Concomitant]
     Active Substance: ROSUVASTATIN CALCIUM
  15. ADVAIR HFA [Concomitant]
     Active Substance: FLUTICASONE PROPIONATE\SALMETEROL XINAFOATE
  16. PREGABALIN. [Concomitant]
     Active Substance: PREGABALIN
  17. FUROSEMIDE. [Concomitant]
     Active Substance: FUROSEMIDE
  18. RISEDRONATE [Concomitant]
     Active Substance: RISEDRONATE SODIUM
     Route: 065

REACTIONS (15)
  - Fatigue [Not Recovered/Not Resolved]
  - Pulmonary function test decreased [Unknown]
  - Depression [Unknown]
  - Carbon monoxide diffusing capacity decreased [Unknown]
  - Back pain [Unknown]
  - Cough [Unknown]
  - Vision blurred [Unknown]
  - Headache [Unknown]
  - Muscle tightness [Unknown]
  - Nausea [Recovering/Resolving]
  - Neck pain [Unknown]
  - Laziness [Unknown]
  - Asthenia [Unknown]
  - Dizziness [Unknown]
  - Abdominal pain upper [Not Recovered/Not Resolved]

NARRATIVE: CASE EVENT DATE: 20150724
